FAERS Safety Report 14171994 (Version 1)
Quarter: 2017Q4

REPORT INFORMATION
  Report Type: Report from Study
  Country: None (occurrence: FR)
  Receive Date: 20171108
  Receipt Date: 20171108
  Transmission Date: 20180321
  Serious: Yes (Hospitalization)
  Sender: FDA-Public Use
  Company Number: FR-ABBVIE-17K-056-2152085-00

PATIENT
  Age: 72 Year
  Sex: Male

DRUGS (1)
  1. DUODOPA [Suspect]
     Active Substance: CARBIDOPA\LEVODOPA
     Indication: PARKINSON^S DISEASE
     Dosage: UNKNOWN
     Route: 050
     Dates: start: 201704

REACTIONS (6)
  - Haematemesis [Recovered/Resolved]
  - Abdominal pain [Recovered/Resolved]
  - Gastritis [Recovered/Resolved]
  - Dyskinesia [Recovered/Resolved]
  - Oesophagitis [Recovered/Resolved]
  - Stoma site irritation [Unknown]

NARRATIVE: CASE EVENT DATE: 20170822
